FAERS Safety Report 23134210 (Version 5)
Quarter: 2024Q2

REPORT INFORMATION
  Report Type: Spontaneous
  Country: US (occurrence: US)
  Receive Date: 20231101
  Receipt Date: 20240418
  Transmission Date: 20240716
  Serious: Yes (Other)
  Sender: FDA-Public Use
  Company Number: US-BRISTOL-MYERS SQUIBB COMPANY-2023-153285

PATIENT
  Age: 80 Year
  Sex: Female
  Weight: 60.33 kg

DRUGS (3)
  1. REVLIMID [Suspect]
     Active Substance: LENALIDOMIDE
     Indication: Plasma cell myeloma
     Dosage: 2WKSON/1WKOFF
     Route: 048
     Dates: start: 20231001
  2. REVLIMID [Suspect]
     Active Substance: LENALIDOMIDE
     Dosage: 2WKSON/1WKOFF
     Route: 048
  3. REVLIMID [Suspect]
     Active Substance: LENALIDOMIDE
     Dosage: 2 WEEKS ON/1 WEEK OFF
     Route: 048

REACTIONS (9)
  - Fall [Not Recovered/Not Resolved]
  - Pelvic fracture [Not Recovered/Not Resolved]
  - Off label use [Unknown]
  - Neuropathy peripheral [Unknown]
  - Tremor [Unknown]
  - Vulvovaginal mycotic infection [Unknown]
  - Bronchitis [Unknown]
  - Pruritus [Unknown]
  - Insomnia [Unknown]

NARRATIVE: CASE EVENT DATE: 20240101
